FAERS Safety Report 7234852-7 (Version None)
Quarter: 2011Q1

REPORT INFORMATION
  Report Type: 
  Country: None (occurrence: None)
  Receive Date: 20110111
  Receipt Date: 20101227
  Transmission Date: 20110831
  Serious: Yes (Hospitalization, Other)
  Sender: FDA-Public Use
  Company Number: ACO_21227_2010

PATIENT
  Age: 48 Year
  Sex: Female

DRUGS (12)
  1. PAXIL [Concomitant]
  2. HYDROCHLOROTHIAZIDE [Concomitant]
  3. COPAXONE [Concomitant]
  4. ACCUPRIL [Concomitant]
  5. AMANTADINE HCL [Concomitant]
  6. AMPYRA [Suspect]
     Indication: PRODUCT USED FOR UNKNOWN INDICATION
     Dosage: 10 MG, Q 12 HRS, ORAL
     Route: 048
     Dates: start: 20100901, end: 20101220
  7. GINKO BILOBA (GINKGO BILOBA) [Concomitant]
  8. DITROPAN [Concomitant]
  9. NEXIUM [Concomitant]
  10. ERYTHROCIN /00020901/ (ERYTHROMYCIN) [Concomitant]
  11. ALEVE [Concomitant]
  12. TYLENOL	  /00020001/ (PARACETAMOL) [Concomitant]

REACTIONS (3)
  - THERAPEUTIC RESPONSE UNEXPECTED [None]
  - CONVULSION [None]
  - CHOKING [None]
